FAERS Safety Report 4315808-0 (Version None)
Quarter: 2004Q1

REPORT INFORMATION
  Report Type: 
  Country: None (occurrence: None)
  Receive Date: 20040310
  Receipt Date: 20040227
  Transmission Date: 20041129
  Serious: Yes (Hospitalization)
  Sender: FDA-Public Use
  Company Number: DE-JNJFOC-20040300230

PATIENT
  Age: 85 Year
  Sex: Male

DRUGS (1)
  1. GALANTAMINE (GALANTAMINE) UNSPECIFIED [Suspect]
     Indication: DEMENTIA

REACTIONS (1)
  - PULMONARY OEDEMA [None]
